FAERS Safety Report 7973834-4 (Version None)
Quarter: 2011Q4

REPORT INFORMATION
  Report Type: 
  Country: None (occurrence: None)
  Receive Date: 20111213
  Receipt Date: 20111205
  Transmission Date: 20120403
  Serious: Yes (Death, Other)
  Sender: FDA-Public Use
  Company Number: DE-ROCHE-1019679

PATIENT
  Sex: Female
  Weight: 45 kg

DRUGS (1)
  1. MIRCERA [Suspect]
     Indication: HAEMOGLOBIN ABNORMAL
     Route: 042
     Dates: start: 20110401

REACTIONS (2)
  - CEREBROVASCULAR ACCIDENT [None]
  - HAEMOGLOBIN DECREASED [None]
